FAERS Safety Report 10089455 (Version 1)
Quarter: 2014Q2

REPORT INFORMATION
  Report Type: Spontaneous
  Country: US (occurrence: None)
  Receive Date: 20140418
  Receipt Date: 20140418
  Transmission Date: 20141212
  Serious: Yes (Other)
  Sender: FDA-Public Use
  Company Number: None

PATIENT
  Age: 80 Year
  Sex: Male

DRUGS (1)
  1. ERIVEDGE [Suspect]
     Indication: MALIGNANT MELANOMA
     Route: 048
     Dates: start: 20140116, end: 20140401

REACTIONS (2)
  - Muscle spasms [None]
  - Ageusia [None]
